FAERS Safety Report 14592986 (Version 2)
Quarter: 2018Q2

REPORT INFORMATION
  Report Type: Spontaneous
  Country: US (occurrence: US)
  Receive Date: 20180302
  Receipt Date: 20180409
  Transmission Date: 20180711
  Serious: No
  Sender: FDA-Public Use
  Company Number: US-BIOVERATIV-2018BV000105

PATIENT
  Age: 63 Year
  Sex: Male

DRUGS (7)
  1. ALPROLIX [Suspect]
     Active Substance: EFTRENONACOG ALFA
     Dosage: PRN - MAY USE TO DAYS IN A ROW FOR ON DEMAND USE
     Route: 042
  2. DESCOVY [Concomitant]
     Active Substance: EMTRICITABINE\TENOFOVIR ALAFENAMIDE FUMARATE
     Indication: HIV INFECTION
     Dosage: 200-25 MG
     Route: 048
  3. ALPROLIX [Suspect]
     Active Substance: EFTRENONACOG ALFA
     Indication: FACTOR IX DEFICIENCY
     Route: 042
     Dates: start: 2017
  4. PREZCOBIX [Concomitant]
     Active Substance: COBICISTAT\DARUNAVIR ETHANOLATE
     Indication: PRODUCT USED FOR UNKNOWN INDICATION
     Route: 048
  5. VALIUM [Concomitant]
     Active Substance: DIAZEPAM
     Indication: MUSCLE SPASMS
     Route: 048
  6. HYDROCODONE 10-325 [Concomitant]
     Active Substance: ACETAMINOPHEN\HYDROCODONE BITARTRATE
     Indication: BACK PAIN
     Dosage: 1-2 TABLETS 10-325 MG PRN
     Route: 048
  7. OXYCODONE [Concomitant]
     Active Substance: OXYCODONE
     Indication: BACK PAIN
     Route: 065

REACTIONS (5)
  - Haemarthrosis [Not Recovered/Not Resolved]
  - Haemarthrosis [Recovered/Resolved]
  - Arthralgia [Recovered/Resolved]
  - Joint swelling [Recovered/Resolved]
  - Joint swelling [Not Recovered/Not Resolved]

NARRATIVE: CASE EVENT DATE: 20180218
